FAERS Safety Report 12823982 (Version 1)
Quarter: 2016Q4

REPORT INFORMATION
  Report Type: Spontaneous
  Country: US (occurrence: US)
  Receive Date: 20161007
  Receipt Date: 20161007
  Transmission Date: 20170207
  Serious: No
  Sender: FDA-Public Use
  Company Number: US-INDIVIOR LIMITED-RB-082771-2015

PATIENT
  Age: 36 Year
  Sex: Male

DRUGS (1)
  1. SUBOXONE [Suspect]
     Active Substance: BUPRENORPHINE HYDROCHLORIDE\NALOXONE HYDROCHLORIDE
     Indication: DRUG DEPENDENCE
     Dosage: UNK, VAIOUS DOSES, 3 DAYS
     Route: 060
     Dates: start: 20150829, end: 20150831

REACTIONS (5)
  - Drug withdrawal syndrome [Not Recovered/Not Resolved]
  - Feeling abnormal [Not Recovered/Not Resolved]
  - Anxiety [Not Recovered/Not Resolved]
  - Product preparation error [Recovered/Resolved]
  - Substance abuse [Recovered/Resolved]

NARRATIVE: CASE EVENT DATE: 20150829
